FAERS Safety Report 25100722 (Version 3)
Quarter: 2025Q4

REPORT INFORMATION
  Report Type: Spontaneous
  Country: US (occurrence: US)
  Receive Date: 20250320
  Receipt Date: 20251125
  Transmission Date: 20260119
  Serious: Yes (Other)
  Sender: BELCHER PHARMACEUTICALS
  Company Number: US-BELCHER PHARMACEUTICALS, LLC-2025US001224

PATIENT

DRUGS (1)
  1. SEMAGLUTIDE [Suspect]
     Active Substance: SEMAGLUTIDE
     Indication: Product used for unknown indication
     Dosage: 5 MG/2ML (2.5 MG/ML) 1.18MG TITRATION

REACTIONS (1)
  - Pancreatitis [Unknown]
